FAERS Safety Report 8180899-6 (Version None)
Quarter: 2012Q1

REPORT INFORMATION
  Report Type: 
  Country: None (occurrence: None)
  Receive Date: 20120302
  Receipt Date: 20120222
  Transmission Date: 20120608
  Serious: Yes (Other)
  Sender: FDA-Public Use
  Company Number: US-PERRIGO-11US008406

PATIENT
  Sex: Male

DRUGS (7)
  1. FUROSEMIDE [Concomitant]
     Indication: FLUID RETENTION
     Dosage: 20 MG
     Route: 048
     Dates: start: 19960101
  2. TUSSIN DM LIQ 359 [Suspect]
     Indication: COUGH
     Dosage: 15 ML BEFORE BEDTIME, AS NEEDED
     Route: 048
  3. TUSSIN DM LIQ 359 [Suspect]
     Indication: INCREASED UPPER AIRWAY SECRETION
  4. SIMVASTATIN [Concomitant]
     Indication: BLOOD CHOLESTEROL INCREASED
     Dosage: 10 MG
     Route: 048
     Dates: start: 19960101
  5. CARBIDOPA + LEVODOPA [Concomitant]
     Indication: PARKINSON'S DISEASE
     Dosage: 25/250 6 TIMES DAILY
     Route: 048
     Dates: start: 19960101
  6. METFORMIN HCL [Concomitant]
     Indication: DIABETES MELLITUS
     Dosage: 500 MG, BID
     Route: 048
     Dates: start: 20100101
  7. QUINAPRIL [Concomitant]
     Indication: HYPERTENSION
     Dosage: 20 MG
     Route: 048
     Dates: start: 19960101

REACTIONS (3)
  - SOMNOLENCE [None]
  - HALLUCINATION [None]
  - INCORRECT DOSE ADMINISTERED [None]
